FAERS Safety Report 17123959 (Version 1)
Quarter: 2019Q4

REPORT INFORMATION
  Report Type: Report from Study
  Country: US (occurrence: US)
  Receive Date: 20191206
  Receipt Date: 20191206
  Transmission Date: 20200122
  Serious: Yes (Death, Hospitalization)
  Sender: FDA-Public Use
  Company Number: US-ACTELION-A-NJ2019-198889

PATIENT
  Age: 64 Year
  Sex: Female

DRUGS (23)
  1. METHYLPHENIDATE. [Concomitant]
     Active Substance: METHYLPHENIDATE
  2. OLANZAPINE. [Concomitant]
     Active Substance: OLANZAPINE
  3. ESOMEPRAZOLE. [Concomitant]
     Active Substance: ESOMEPRAZOLE MAGNESIUM
  4. TADALAFIL. [Concomitant]
     Active Substance: TADALAFIL
  5. LAMOTRIGINE. [Concomitant]
     Active Substance: LAMOTRIGINE
  6. BUPROPION. [Concomitant]
     Active Substance: BUPROPION
  7. ROLAIDS [Concomitant]
     Active Substance: CALCIUM CARBONATE\MAGNESIUM HYDROXIDE
  8. MELATONIN [Concomitant]
     Active Substance: MELATONIN
  9. CLONAZEPAM. [Concomitant]
     Active Substance: CLONAZEPAM
  10. NARCAN [Concomitant]
     Active Substance: NALOXONE HYDROCHLORIDE
  11. OPSUMIT [Suspect]
     Active Substance: MACITENTAN
     Indication: PULMONARY HYPERTENSION
     Dosage: 10 MG, QD
     Route: 048
     Dates: end: 20191101
  12. TREPROSTINIL. [Concomitant]
     Active Substance: TREPROSTINIL
  13. MYCOPHENOLATE [Concomitant]
     Active Substance: MYCOPHENOLIC ACID
  14. TRAMADOL. [Concomitant]
     Active Substance: TRAMADOL
  15. LEVOTHYROXINE. [Concomitant]
     Active Substance: LEVOTHYROXINE
  16. VALACYCLOVIR [Concomitant]
     Active Substance: VALACYCLOVIR HYDROCHLORIDE
  17. ANORO ELLIPTA [Concomitant]
     Active Substance: UMECLIDINIUM BROMIDE\VILANTEROL TRIFENATATE
  18. TIZANIDINE. [Concomitant]
     Active Substance: TIZANIDINE
  19. TORSEMIDE. [Concomitant]
     Active Substance: TORSEMIDE
  20. SPIRONOLACTONE. [Concomitant]
     Active Substance: SPIRONOLACTONE
  21. TYLENOL [Concomitant]
     Active Substance: ACETAMINOPHEN
  22. ARNUITY ELLIPTA [Concomitant]
     Active Substance: FLUTICASONE FUROATE
  23. LURASIDONE [Concomitant]
     Active Substance: LURASIDONE

REACTIONS (6)
  - Motor dysfunction [Unknown]
  - Death [Fatal]
  - Fall [Unknown]
  - Headache [Unknown]
  - Central nervous system infection [Unknown]
  - Cerebrovascular accident [Unknown]

NARRATIVE: CASE EVENT DATE: 20191001
